FAERS Safety Report 6702162-X (Version None)
Quarter: 2010Q2

REPORT INFORMATION
  Report Type: 
  Country: None (occurrence: None)
  Receive Date: 20100429
  Receipt Date: 20100422
  Transmission Date: 20101027
  Serious: Yes (Other)
  Sender: FDA-Public Use
  Company Number: US-SANOFI-AVENTIS-2010SA024006

PATIENT
  Age: 56 Year
  Sex: Female

DRUGS (5)
  1. OPTICLICK [Suspect]
     Indication: TYPE 2 DIABETES MELLITUS
     Dates: start: 20060101
  2. APIDRA [Suspect]
     Indication: TYPE 2 DIABETES MELLITUS
     Dosage: SLIDING SCALE
     Route: 058
     Dates: start: 20080101
  3. APIDRA [Suspect]
     Dosage: DOSE:48 UNIT(S)
     Route: 058
     Dates: start: 20100201, end: 20100201
  4. LANTUS [Suspect]
     Indication: TYPE 2 DIABETES MELLITUS
     Dosage: DOSE:51 UNIT(S)
     Route: 058
     Dates: start: 20030101
  5. LANTUS [Suspect]
     Dosage: DOSE:48 UNIT(S)
     Route: 058

REACTIONS (3)
  - BLOOD GLUCOSE DECREASED [None]
  - CEREBROVASCULAR ACCIDENT [None]
  - WRONG DRUG ADMINISTERED [None]
